FAERS Safety Report 18118863 (Version 3)
Quarter: 2020Q3

REPORT INFORMATION
  Report Type: Spontaneous
  Country: CN (occurrence: CN)
  Receive Date: 20200806
  Receipt Date: 20200908
  Transmission Date: 20201103
  Serious: Yes (Life-Threatening, Hospitalization)
  Sender: FDA-Public Use
  Company Number: CN-CELGENEUS-CHN-20200800094

PATIENT
  Age: 64 Year
  Sex: Male
  Weight: 69 kg

DRUGS (12)
  1. BGB A317 (TISLELIZUMAB) [Suspect]
     Active Substance: TISLELIZUMAB
     Indication: LUNG NEOPLASM MALIGNANT
     Dosage: 200 MILLIGRAM  Q3WEEK
     Route: 041
     Dates: start: 20181123, end: 20190125
  2. BGB A317 (TISLELIZUMAB) [Suspect]
     Active Substance: TISLELIZUMAB
     Dosage: 200 MILLIGRAM  Q3WEEK
     Route: 041
     Dates: end: 20200710
  3. FLUCONAZOLE. [Concomitant]
     Active Substance: FLUCONAZOLE
     Indication: ANTI-INFECTIVE THERAPY
     Dosage: 200 MILLIGRAM
     Route: 048
     Dates: start: 20200817
  4. GINKGO DEW [Concomitant]
     Active Substance: GINKGO
     Indication: PRODUCTIVE COUGH
     Dosage: 30 MILLILITER
     Route: 065
     Dates: start: 20200817
  5. GINKGO DEW [Concomitant]
     Active Substance: GINKGO
     Indication: COUGH
  6. ABRAXANE [Suspect]
     Active Substance: PACLITAXEL
     Indication: LUNG NEOPLASM MALIGNANT
     Dosage: 100 MILLIGRAM Q3WEEK
     Route: 041
     Dates: start: 20181123, end: 20190213
  7. CARBOPLATIN. [Suspect]
     Active Substance: CARBOPLATIN
     Indication: LUNG NEOPLASM MALIGNANT
     Dosage: AUC 5
     Route: 041
     Dates: start: 20181123, end: 20190125
  8. LITRE PLATELET [Concomitant]
     Indication: PLATELET COUNT DECREASED
     Dosage: 12 TABLET
     Route: 048
     Dates: start: 20200817
  9. ABRAXANE [Suspect]
     Active Substance: PACLITAXEL
     Dosage: 100 MILLIGRAM Q3WEEK
     Route: 041
     Dates: start: 2019, end: 20190219
  10. LEVOFLOXACIN. [Concomitant]
     Active Substance: LEVOFLOXACIN
     Indication: ANTI-INFECTIVE THERAPY
     Dosage: .5 GRAM
     Route: 048
     Dates: start: 20200817
  11. CARBOPLATIN. [Suspect]
     Active Substance: CARBOPLATIN
     Dosage: AUC 5
     Route: 041
     Dates: start: 2019, end: 20190219
  12. IRBESARTAN. [Concomitant]
     Active Substance: IRBESARTAN
     Indication: PRODUCT USED FOR UNKNOWN INDICATION
     Route: 065
     Dates: start: 20200120

REACTIONS (1)
  - Haemoptysis [Recovered/Resolved]

NARRATIVE: CASE EVENT DATE: 20200721
